FAERS Safety Report 5226189-2 (Version None)
Quarter: 2007Q1

REPORT INFORMATION
  Report Type: 
  Country: None (occurrence: None)
  Receive Date: 20070129
  Receipt Date: 20061130
  Transmission Date: 20070707
  Serious: Yes (Death)
  Sender: FDA-Public Use
  Company Number: T200601660

PATIENT
  Age: 35 Year

DRUGS (3)
  1. PAMELOR [Suspect]
  2. VENLAFAXINE HCL [Suspect]
  3. CHARCOAL, ACTIVATE (CHARCOAL, ACTIVATED) [Suspect]

REACTIONS (2)
  - ASPIRATION [None]
  - COMPLETED SUICIDE [None]
